FAERS Safety Report 24139777 (Version 1)
Quarter: 2024Q3

REPORT INFORMATION
  Report Type: Report from Study
  Country: MX (occurrence: None)
  Receive Date: 20240726
  Receipt Date: 20240726
  Transmission Date: 20241017
  Serious: Yes (Other)
  Sender: ASTRAZENECA
  Company Number: 2019SF74577

PATIENT
  Age: 70 Year
  Sex: Female
  Weight: 85 kg

DRUGS (1)
  1. NEXIUM [Suspect]
     Active Substance: ESOMEPRAZOLE MAGNESIUM
     Indication: Gastritis
     Route: 048
     Dates: start: 2017

REACTIONS (2)
  - Fall [Unknown]
  - Shoulder fracture [Unknown]
